FAERS Safety Report 13350838 (Version 1)
Quarter: 2017Q1

REPORT INFORMATION
  Report Type: Spontaneous
  Country: CA (occurrence: CA)
  Receive Date: 20170320
  Receipt Date: 20170320
  Transmission Date: 20170429
  Serious: Yes (Other)
  Sender: FDA-Public Use
  Company Number: CA-ASTELLAS-2017US008873

PATIENT
  Age: 73 Year
  Sex: Male

DRUGS (1)
  1. XTANDI [Suspect]
     Active Substance: ENZALUTAMIDE
     Indication: PRODUCT USED FOR UNKNOWN INDICATION
     Route: 065

REACTIONS (11)
  - Dysphagia [Unknown]
  - Chills [Unknown]
  - Fatigue [Unknown]
  - Cystitis [Unknown]
  - Oropharyngeal pain [Unknown]
  - Retching [Unknown]
  - Product size issue [Unknown]
  - Foreign body [Unknown]
  - Dysgeusia [Unknown]
  - Cough [Unknown]
  - Nervousness [Unknown]
